FAERS Safety Report 9706263 (Version 1)
Quarter: 2013Q4

REPORT INFORMATION
  Report Type: Spontaneous
  Country: FR (occurrence: FR)
  Receive Date: 20131125
  Receipt Date: 20131125
  Transmission Date: 20140711
  Serious: Yes (Other)
  Sender: FDA-Public Use
  Company Number: FR-AMGEN-FRASP2013081891

PATIENT
  Age: 67 Year
  Sex: Male

DRUGS (17)
  1. XGEVA [Suspect]
     Indication: PROPHYLAXIS
     Dosage: UNK
     Route: 065
     Dates: start: 20131004
  2. ZOMETA [Concomitant]
     Route: 042
  3. ZYTIGA [Concomitant]
  4. SOLUPRED                           /00016201/ [Concomitant]
  5. ZOLADEX                            /00732101/ [Concomitant]
  6. CACIT VITAMINE D3 [Concomitant]
  7. ESIDREX [Concomitant]
  8. LODOZ [Concomitant]
  9. SPIFEN [Concomitant]
  10. ZOCOR [Concomitant]
  11. KARDEGIC [Concomitant]
  12. LOPERAMIDE [Concomitant]
  13. TRIATEC                            /00116401/ [Concomitant]
  14. GLUCOPHAGE [Concomitant]
  15. BETNEVAL [Concomitant]
  16. DAONIL [Concomitant]
  17. DOLIPRANE [Concomitant]

REACTIONS (1)
  - Osteonecrosis of jaw [Not Recovered/Not Resolved]
